FAERS Safety Report 22275749 (Version 1)
Quarter: 2023Q2

REPORT INFORMATION
  Report Type: Spontaneous
  Country: US (occurrence: US)
  Receive Date: 20230502
  Receipt Date: 20230502
  Transmission Date: 20230722
  Serious: No
  Sender: FDA-Public Use
  Company Number: US-TEVA-2023-US-2877928

PATIENT
  Age: 78 Year
  Sex: Female

DRUGS (1)
  1. FAMOTIDINE [Suspect]
     Active Substance: FAMOTIDINE
     Indication: Gastrooesophageal reflux disease
     Dosage: 80 MILLIGRAM DAILY;
     Route: 065

REACTIONS (3)
  - Dermatitis [Unknown]
  - Erythema [Unknown]
  - Pruritus [Unknown]
